FAERS Safety Report 5830026-2 (Version None)
Quarter: 2008Q3

REPORT INFORMATION
  Report Type: 
  Country: None (occurrence: None)
  Receive Date: 20080722
  Receipt Date: 20080409
  Transmission Date: 20090109
  Serious: Yes (Other)
  Sender: FDA-Public Use
  Company Number: 2008BI009318

PATIENT
  Age: 53 Year
  Sex: Female
  Weight: 53.0709 kg

DRUGS (2)
  1. AVONEX [Suspect]
     Indication: MULTIPLE SCLEROSIS
     Dosage: 30 UG;QW;IM; 30 UG;QW;IM
     Route: 030
     Dates: start: 20020401, end: 20030101
  2. AVONEX [Suspect]
     Indication: MULTIPLE SCLEROSIS
     Dosage: 30 UG;QW;IM; 30 UG;QW;IM
     Route: 030
     Dates: start: 20030101

REACTIONS (6)
  - BLINDNESS [None]
  - CONVULSION [None]
  - DRUG HYPERSENSITIVITY [None]
  - STAPHYLOCOCCAL INFECTION [None]
  - STRESS [None]
  - WEIGHT DECREASED [None]
